FAERS Safety Report 24110344 (Version 1)
Quarter: 2024Q3

REPORT INFORMATION
  Report Type: Spontaneous
  Country: US (occurrence: US)
  Receive Date: 20240718
  Receipt Date: 20240718
  Transmission Date: 20241017
  Serious: No
  Sender: MERCK
  Company Number: US-009507513-2406USA009488

PATIENT
  Sex: Male

DRUGS (2)
  1. KEYTRUDA [Suspect]
     Active Substance: PEMBROLIZUMAB
     Indication: Lung carcinoma cell type unspecified stage IV
     Dosage: UNK, Q3W
     Route: 042
     Dates: start: 2019, end: 2023
  2. KEYTRUDA [Suspect]
     Active Substance: PEMBROLIZUMAB
     Dosage: UNK, EVERY 6 WEEKS
     Route: 042
     Dates: start: 2023

REACTIONS (5)
  - Hand fracture [Unknown]
  - Foot fracture [Unknown]
  - Limb traumatic amputation [Unknown]
  - Accident [Unknown]
  - Product use issue [Unknown]
